FAERS Safety Report 7141128-5 (Version None)
Quarter: 2010Q4

REPORT INFORMATION
  Report Type: 
  Country: None (occurrence: None)
  Receive Date: 20101207
  Receipt Date: 20101201
  Transmission Date: 20110411
  Serious: Yes (Other)
  Sender: FDA-Public Use
  Company Number: US-TYCO HEALTHCARE/MALLINCKRODT-T201002363

PATIENT
  Age: 34 Year
  Sex: Male

DRUGS (3)
  1. EXALGO [Suspect]
     Indication: BACK PAIN
     Dosage: 15 MG SR X 1
     Route: 048
  2. NORCO [Suspect]
     Indication: BACK PAIN
     Dosage: 10/325 X 2
     Route: 048
  3. SOMA [Suspect]
     Indication: BACK PAIN
     Dosage: ONE PILL
     Route: 048

REACTIONS (3)
  - DRUG TOXICITY [None]
  - DYSPNOEA [None]
  - HYPOAESTHESIA [None]
